FAERS Safety Report 5971018-2 (Version None)
Quarter: 2008Q4

REPORT INFORMATION
  Report Type: 
  Country: None (occurrence: None)
  Receive Date: 20081128
  Receipt Date: 20081118
  Transmission Date: 20090506
  Serious: Yes (Death, Other)
  Sender: FDA-Public Use
  Company Number: GB-RANBAXY-2008RR-19515

PATIENT
  Age: 40 Year
  Sex: Male

DRUGS (4)
  1. LISINOPRIL [Suspect]
     Indication: HYPERTENSION
     Dosage: UNK
     Dates: start: 20060601, end: 20060101
  2. PERINDOPRIL [Suspect]
     Indication: CHEST PAIN
     Dosage: UNK
     Dates: start: 20060101, end: 20060101
  3. RAMIPRIL [Suspect]
     Indication: CHEST PAIN
     Dosage: UNK
     Dates: start: 20060101, end: 20060101
  4. APROVEL [Suspect]
     Indication: HYPERTENSION
     Dosage: 75 MG, UNK

REACTIONS (3)
  - ACUTE CORONARY SYNDROME [None]
  - HYPERSENSITIVITY [None]
  - LEUKOCYTOSIS [None]
